FAERS Safety Report 6609635-9 (Version None)
Quarter: 2010Q1

REPORT INFORMATION
  Report Type: 
  Country: None (occurrence: None)
  Receive Date: 20100212
  Receipt Date: 20091130
  Transmission Date: 20100710
  Serious: No
  Sender: FDA-Public Use
  Company Number: 1000010441

PATIENT
  Age: 79 Year
  Sex: Female

DRUGS (10)
  1. SAVELLA [Suspect]
     Indication: FIBROMYALGIA
     Dosage: 12.5 MG (12.5 MG, 1 IN 1 D), ORAL
     Route: 048
     Dates: start: 20091127, end: 20091127
  2. SAVELLA [Suspect]
     Indication: FIBROMYALGIA
     Dosage: 25 MG (12.5 MG, 2 IN 1 D), ORAL
     Route: 048
     Dates: start: 20091128, end: 20091128
  3. OXYCODONE HCL [Concomitant]
  4. OXYCONTIN [Concomitant]
  5. BACLOFEN [Concomitant]
  6. MIRAPEX [Concomitant]
  7. REMERON [Concomitant]
  8. PROTONIX [Concomitant]
  9. DUONEB [Concomitant]
  10. ADVAIR DISKUS 100/50 [Concomitant]

REACTIONS (2)
  - DISORIENTATION [None]
  - SOMNOLENCE [None]
